FAERS Safety Report 5757297-5 (Version None)
Quarter: 2008Q2

REPORT INFORMATION
  Report Type: 
  Country: None (occurrence: None)
  Receive Date: 20080603
  Receipt Date: 20080527
  Transmission Date: 20081010
  Serious: Yes (Hospitalization)
  Sender: FDA-Public Use
  Company Number: FR-ASTRAZENECA-2007CG01355

PATIENT
  Age: 22369 Day
  Sex: Female

DRUGS (7)
  1. CRESTOR [Suspect]
     Indication: DYSLIPIDAEMIA
     Route: 048
     Dates: start: 20070201, end: 20070901
  2. FUCIDINE CAP [Interacting]
     Indication: OSTEITIS
     Route: 048
     Dates: start: 20070824
  3. OFLOCET [Interacting]
     Indication: OSTEITIS
     Route: 048
     Dates: start: 20070824
  4. ASPIRIN [Concomitant]
     Route: 048
  5. GLUCOPHAGE [Concomitant]
     Indication: TYPE 2 DIABETES MELLITUS
     Route: 048
  6. IRBESARTAN [Concomitant]
     Route: 048
  7. TARDYFERON [Concomitant]
     Route: 048

REACTIONS (4)
  - ABASIA [None]
  - DRUG INTERACTION [None]
  - HEPATIC ENZYME INCREASED [None]
  - RHABDOMYOLYSIS [None]
